FAERS Safety Report 9940056 (Version 1)
Quarter: 2014Q1

REPORT INFORMATION
  Report Type: Report from Study
  Country: US (occurrence: US)
  Receive Date: 20140303
  Receipt Date: 20140303
  Transmission Date: 20141002
  Serious: Yes (Other)
  Sender: FDA-Public Use
  Company Number: US-ABBVIE-13P-163-1033474-00

PATIENT
  Age: 53 Year
  Sex: Female

DRUGS (2)
  1. HUMIRA [Suspect]
     Indication: RHEUMATOID ARTHRITIS
     Dosage: 40 MG WEEKLY
     Dates: start: 20120802, end: 20121217
  2. LEVOXYL [Concomitant]
     Indication: HYPOTHYROIDISM
     Dosage: 200 MCG DAILY

REACTIONS (1)
  - Foot operation [Recovering/Resolving]
